FAERS Safety Report 23849717 (Version 3)
Quarter: 2024Q2

REPORT INFORMATION
  Report Type: Spontaneous
  Country: US (occurrence: US)
  Receive Date: 20240513
  Receipt Date: 20240523
  Transmission Date: 20240716
  Serious: Yes (Other)
  Sender: FDA-Public Use
  Company Number: US-Merz Pharmaceuticals GmbH-24-01557

PATIENT
  Age: 43 Year
  Sex: Female

DRUGS (3)
  1. XEOMIN [Suspect]
     Active Substance: INCOBOTULINUMTOXINA
     Indication: Skin cosmetic procedure
     Dates: start: 20240406, end: 20240406
  2. XEOMIN [Suspect]
     Active Substance: INCOBOTULINUMTOXINA
  3. Belotero Balance US [Concomitant]
     Indication: Skin cosmetic procedure
     Dosage: 0.5 ML PER SIDE
     Route: 023
     Dates: start: 20240406, end: 20240406

REACTIONS (2)
  - Injection site oedema [Not Recovered/Not Resolved]
  - Off label use [Unknown]

NARRATIVE: CASE EVENT DATE: 20240406
